FAERS Safety Report 21990533 (Version 2)
Quarter: 2023Q1

REPORT INFORMATION
  Report Type: Spontaneous
  Country: JP (occurrence: JP)
  Receive Date: 20230214
  Receipt Date: 20230303
  Transmission Date: 20230418
  Serious: Yes (Other)
  Sender: FDA-Public Use
  Company Number: JP-OTSUKA-2023_003360

PATIENT
  Age: 67 Year
  Sex: Male

DRUGS (3)
  1. SAMSCA [Suspect]
     Active Substance: TOLVAPTAN
     Indication: Congenital cystic kidney disease
     Dosage: 30MG/DAY
     Route: 048
     Dates: start: 20230120, end: 20230204
  2. SAMSCA [Suspect]
     Active Substance: TOLVAPTAN
     Dosage: 22.5 MG, UNK
     Route: 048
     Dates: start: 20230104
  3. INDAPAMIDE [Suspect]
     Active Substance: INDAPAMIDE
     Indication: Product used for unknown indication
     Dosage: UNK
     Route: 048

REACTIONS (8)
  - Hypokalaemia [Recovered/Resolved]
  - Discouragement [Recovering/Resolving]
  - White blood cell count decreased [Unknown]
  - Depression [Unknown]
  - Malaise [Recovering/Resolving]
  - Insomnia [Recovering/Resolving]
  - Decreased appetite [Recovering/Resolving]
  - Underdose [Unknown]

NARRATIVE: CASE EVENT DATE: 20230130
